FAERS Safety Report 5258678-9 (Version None)
Quarter: 2007Q1

REPORT INFORMATION
  Report Type: 
  Country: None (occurrence: None)
  Receive Date: 20070305
  Receipt Date: 20070220
  Transmission Date: 20070707
  Serious: Yes (Other)
  Sender: FDA-Public Use
  Company Number: 2007SP003265

PATIENT
  Age: 32 Year
  Sex: Female

DRUGS (3)
  1. DESLORATADINE [Suspect]
     Indication: URTICARIA
     Dosage: 5 MG;PRN;PO
     Route: 048
     Dates: start: 20060201, end: 20060501
  2. DESLORATADINE [Suspect]
     Indication: URTICARIA
     Dosage: 5 MG;PRN;PO
     Route: 048
     Dates: start: 20060501, end: 20060601
  3. DESLORATADINE [Suspect]
     Indication: URTICARIA
     Dosage: 5 MG;PRN;PO
     Route: 048
     Dates: start: 20060801, end: 20070201

REACTIONS (4)
  - ACOUSTIC STIMULATION TESTS ABNORMAL [None]
  - CONDITION AGGRAVATED [None]
  - TINNITUS [None]
  - URTICARIA [None]
